FAERS Safety Report 20155674 (Version 3)
Quarter: 2022Q1

REPORT INFORMATION
  Report Type: Report from Study
  Country: US (occurrence: US)
  Receive Date: 20211207
  Receipt Date: 20220214
  Transmission Date: 20220423
  Serious: Yes (Death)
  Sender: FDA-Public Use
  Company Number: US-BAUSCH-BL-2021-040321

PATIENT
  Age: 77 Year
  Sex: Female

DRUGS (1)
  1. ZIRGAN [Suspect]
     Active Substance: GANCICLOVIR
     Indication: Herpes virus infection
     Dosage: ONE DROP IN LEFT EYE FIVE TIMES A DAY AS DIRECTED.
     Route: 047
     Dates: start: 202106

REACTIONS (1)
  - Death [Fatal]

NARRATIVE: CASE EVENT DATE: 20210824
